FAERS Safety Report 24081129 (Version 1)
Quarter: 2024Q3

REPORT INFORMATION
  Report Type: Spontaneous
  Country: US (occurrence: US)
  Receive Date: 20240711
  Receipt Date: 20240711
  Transmission Date: 20241017
  Serious: Yes (Other)
  Sender: Unknown Manufacturer
  Company Number: US-OTTER-US-2024AST000259

PATIENT
  Age: 62 Year
  Sex: Male

DRUGS (4)
  1. METHOTREXATE [Suspect]
     Active Substance: METHOTREXATE
     Indication: Chemotherapy
     Dosage: UNK, HIGH DOSE
     Route: 042
  2. DEXAMETHASONE [Suspect]
     Active Substance: DEXAMETHASONE
     Indication: Chemotherapy
     Dosage: UNK, QD
     Route: 042
  3. LOPINAVIR\RITONAVIR [Concomitant]
     Active Substance: LOPINAVIR\RITONAVIR
     Indication: Antiretroviral therapy
     Dosage: UNK
     Route: 065
     Dates: start: 2007
  4. TENOFOVIR/EMTRICITABINE SANDOZ [Concomitant]
     Indication: Antiretroviral therapy
     Dosage: UNK
     Route: 065
     Dates: start: 2007

REACTIONS (4)
  - Hypoxia [Unknown]
  - Delirium [Unknown]
  - Mania [Unknown]
  - Product use in unapproved indication [Unknown]
